FAERS Safety Report 6674169-2 (Version None)
Quarter: 2010Q2

REPORT INFORMATION
  Report Type: 
  Country: None (occurrence: None)
  Receive Date: 20100407
  Receipt Date: 20100322
  Transmission Date: 20101027
  Serious: Yes (Other)
  Sender: FDA-Public Use
  Company Number: 2010AP000581

PATIENT
  Age: 24 Year
  Sex: Female

DRUGS (2)
  1. OMEPRAZOLE [Suspect]
     Indication: GASTROOESOPHAGEAL REFLUX DISEASE
     Dosage: 20 MG;QD; PO
     Route: 048
     Dates: start: 20100222, end: 20100225
  2. ERYTHROMYCIN [Concomitant]

REACTIONS (3)
  - DRUG ERUPTION [None]
  - OROPHARYNGEAL BLISTERING [None]
  - OROPHARYNGEAL PAIN [None]
